FAERS Safety Report 9617747 (Version 2)
Quarter: 2015Q2

REPORT INFORMATION
  Report Type: Spontaneous
  Country: TW (occurrence: TW)
  Receive Date: 20131011
  Receipt Date: 20150512
  Transmission Date: 20150821
  Serious: Yes (Hospitalization)
  Sender: FDA-Public Use
  Company Number: PHHY2013TW111130

PATIENT
  Age: 41 Year
  Sex: Female

DRUGS (2)
  1. RISPERIDONE. [Suspect]
     Active Substance: RISPERIDONE
     Indication: SCHIZOPHRENIA, PARANOID TYPE
     Dosage: 3 MG, PER DAY
     Route: 065
  2. THIAMYLAL SODIUM [Concomitant]
     Active Substance: THIAMYLAL SODIUM
     Indication: ANAESTHESIA
     Route: 042

REACTIONS (5)
  - Tardive dyskinesia [Recovering/Resolving]
  - Aggression [Recovering/Resolving]
  - Dyskinesia [Recovering/Resolving]
  - Hallucination, auditory [Recovering/Resolving]
  - Delusion [Recovering/Resolving]

NARRATIVE: CASE EVENT DATE: 2002
